FAERS Safety Report 9534986 (Version 1)
Quarter: 2013Q3

REPORT INFORMATION
  Report Type: Spontaneous
  Country: SE (occurrence: SE)
  Receive Date: 20130918
  Receipt Date: 20130918
  Transmission Date: 20140515
  Serious: Yes (Other)
  Sender: FDA-Public Use
  Company Number: SE-ASTRAZENECA-2013SE69550

PATIENT
  Age: 64 Year
  Sex: Female

DRUGS (7)
  1. SEROQUEL DEPOT [Suspect]
     Route: 048
     Dates: start: 20130128, end: 201305
  2. SEROQUEL DEPOT [Suspect]
     Dosage: QUETIAPIN ACTAVIS, 200 MG DAILY
     Route: 048
     Dates: start: 201305, end: 201305
  3. LYRICA [Concomitant]
  4. ZOPIKLON [Concomitant]
  5. CIRCADIN [Concomitant]
  6. VOXRA [Concomitant]
  7. LITHIONIT [Concomitant]
     Route: 048

REACTIONS (3)
  - Anxiety [Recovered/Resolved]
  - Hallucination [Recovered/Resolved]
  - Akathisia [Recovered/Resolved]
